FAERS Safety Report 14635833 (Version 1)
Quarter: 2018Q1

REPORT INFORMATION
  Report Type: Spontaneous
  Country: None (occurrence: IT)
  Receive Date: 20180314
  Receipt Date: 20180314
  Transmission Date: 20180509
  Serious: Yes (Life-Threatening)
  Sender: FDA-Public Use
  Company Number: IT-B. BRAUN MEDICAL INC.-2043694

PATIENT
  Age: 34 Year
  Sex: Female

DRUGS (4)
  1. SODIUM CHLORIDE INJECTIONS USP 0264-7800-00 0264-7800-10 [Suspect]
     Active Substance: SODIUM CHLORIDE
  2. VITAMIN C [Suspect]
     Active Substance: ASCORBIC ACID
  3. COLECALCIFEROL [Suspect]
     Active Substance: CHOLECALCIFEROL
  4. CINACALCET. [Suspect]
     Active Substance: CINACALCET

REACTIONS (6)
  - Maternal exposure during pregnancy [None]
  - Low birth weight baby [None]
  - Foetal exposure during pregnancy [None]
  - Premature delivery [None]
  - Maternal drugs affecting foetus [None]
  - Premature baby [None]
